FAERS Safety Report 19233141 (Version 1)
Quarter: 2021Q2

REPORT INFORMATION
  Report Type: Other
  Country: CN (occurrence: CN)
  Receive Date: 20210507
  Receipt Date: 20210507
  Transmission Date: 20210717
  Serious: Yes (Other)
  Sender: FDA-Public Use
  Company Number: CN-ROCHE-2822965

PATIENT

DRUGS (7)
  1. CYCLOPHOSPHAMIDE. [Suspect]
     Active Substance: CYCLOPHOSPHAMIDE
     Indication: TAKAYASU^S ARTERITIS
     Route: 065
  2. PREDNISONE. [Suspect]
     Active Substance: PREDNISONE
     Indication: TAKAYASU^S ARTERITIS
     Dosage: 0.8?1.0 MG/KG/DAY WAS INITIATED FOR 4 WEEKS AND TAPERED GRADUALLY TO A MAINTENANCE DOSE OF 0.1?0.2 M
     Route: 048
  3. TOCILIZUMAB. [Suspect]
     Active Substance: TOCILIZUMAB
     Indication: TAKAYASU^S ARTERITIS
     Dosage: 4?8 MG/KG
     Route: 042
  4. LEFLUNOMIDE. [Suspect]
     Active Substance: LEFLUNOMIDE
     Indication: TAKAYASU^S ARTERITIS
     Route: 048
  5. METHOTREXATE. [Suspect]
     Active Substance: METHOTREXATE
     Indication: TAKAYASU^S ARTERITIS
     Dosage: 10?15 MG/WEEK
     Route: 048
  6. MYCOPHENOLATE MOFETIL. [Suspect]
     Active Substance: MYCOPHENOLATE MOFETIL
     Indication: TAKAYASU^S ARTERITIS
     Route: 048
  7. SIROLIMUS. [Suspect]
     Active Substance: SIROLIMUS
     Indication: TAKAYASU^S ARTERITIS
     Route: 048

REACTIONS (10)
  - Aspergillus infection [Unknown]
  - Gastroenteritis [Unknown]
  - Pneumonia [Unknown]
  - Cutaneous tuberculosis [Unknown]
  - Urinary tract infection [Unknown]
  - Anal infection [Unknown]
  - Pneumonia bacterial [Unknown]
  - Gingivitis [Unknown]
  - Tonsillitis [Unknown]
  - Upper respiratory tract infection [Unknown]
